FAERS Safety Report 8876927 (Version 1)
Quarter: 2012Q4

REPORT INFORMATION
  Report Type: Spontaneous
  Country: US (occurrence: None)
  Receive Date: 20121024
  Receipt Date: 20121024
  Transmission Date: 20130627
  Serious: Yes (Hospitalization)
  Sender: FDA-Public Use
  Company Number: EUS-2012-00845

PATIENT
  Age: 15 Year
  Sex: Male
  Weight: 75 kg

DRUGS (9)
  1. ERWINAZE [Suspect]
     Indication: B PRECURSOR TYPE ACUTE LEUKAEMIA
     Dates: end: 20120608
  2. METHOTREXATE (METHOTREXATE) [Concomitant]
  3. CYTARABINE (CYTARABINE) [Concomitant]
  4. THIOGUANINE (THIOGUANINE) [Concomitant]
  5. PENTAMIDINE (PENTAMIDINE) [Concomitant]
  6. FLUCONAZOLE (FLUCONAZOLE) [Concomitant]
  7. DOCUSATE (DOCUSATE) [Concomitant]
  8. HYDROMORPHONE (HYDROMORPHONE) [Concomitant]
  9. ANSENTRON (ONDANSETRON HYDROCHLORIDE) [Concomitant]

REACTIONS (8)
  - Dysarthria [None]
  - Headache [None]
  - Migraine [None]
  - Platelet count increased [None]
  - Hypoaesthesia [None]
  - Paraesthesia [None]
  - Gait disturbance [None]
  - Cerebral ischaemia [None]
